FAERS Safety Report 24310486 (Version 1)
Quarter: 2024Q3

REPORT INFORMATION
  Report Type: Spontaneous
  Country: US (occurrence: US)
  Receive Date: 20240912
  Receipt Date: 20240912
  Transmission Date: 20241017
  Serious: Yes (Hospitalization)
  Sender: STRIDES
  Company Number: US-STRIDES ARCOLAB LIMITED-2023SP017447

PATIENT
  Age: 14 Year
  Sex: Female

DRUGS (11)
  1. FUROSEMIDE [Suspect]
     Active Substance: FUROSEMIDE
     Indication: Oedema
     Dosage: UNK
     Route: 065
  2. FUROSEMIDE [Suspect]
     Active Substance: FUROSEMIDE
     Dosage: UNK, DAILY
     Route: 065
  3. SODIUM CHLORIDE [Concomitant]
     Active Substance: SODIUM CHLORIDE
     Indication: Diabetic ketoacidosis
     Dosage: 1 LITER (BOLUS)
     Route: 040
  4. SODIUM CHLORIDE [Concomitant]
     Active Substance: SODIUM CHLORIDE
     Dosage: UNK
     Route: 065
  5. INSULIN NOS [Concomitant]
     Active Substance: INSULIN NOS
     Indication: Diabetic ketoacidosis
     Dosage: UNK (INSULIN DRIP)
     Route: 065
  6. POTASSIUM [Concomitant]
     Active Substance: POTASSIUM
     Indication: Diabetic ketoacidosis
     Dosage: UNK (RECEIVED VARYING POTASSIUM CONTENT VIA A TWO BAG SYSTEM ADMINISTERED AT ONE AND HALF TIMES THE
     Route: 042
  7. POTASSIUM ACETATE [Concomitant]
     Active Substance: POTASSIUM ACETATE
     Indication: Hypokalaemia
     Dosage: 16 MILLIEQUIVALENT (RECEIVED ONE DOSE)
     Route: 042
  8. POTASSIUM PHOSPHATE [Concomitant]
     Active Substance: POTASSIUM PHOSPHATE
     Indication: Hypophosphataemia
     Dosage: 17 MILLIMOLE (RECEIVED ONE DOSE)
     Route: 042
  9. INSULIN GLARGINE [Concomitant]
     Active Substance: INSULIN GLARGINE
     Indication: Type 1 diabetes mellitus
     Dosage: UNK (RECEIVED MULTIPLE DAILY INJECTION REGIMEN)
     Route: 065
  10. INSULIN LISPRO [Concomitant]
     Active Substance: INSULIN LISPRO
     Indication: Type 1 diabetes mellitus
     Dosage: UNK (RECEIVED MULTIPLE DAILY INJECTION REGIMEN)
     Route: 065
  11. DEXTROSE [Concomitant]
     Active Substance: DEXTROSE\DEXTROSE MONOHYDRATE
     Indication: Diabetic ketoacidosis
     Dosage: UNK (RECEIVED VARYING DEXTROSE CONTENT VIA A TWO BAG SYSTEM ADMINISTERED AT ONE AND HALF TIMES THE M
     Route: 042

REACTIONS (1)
  - Drug ineffective [Unknown]
